FAERS Safety Report 9636269 (Version 3)
Quarter: 2014Q2

REPORT INFORMATION
  Report Type: Spontaneous
  Country: GB (occurrence: GB)
  Receive Date: 20131021
  Receipt Date: 20140509
  Transmission Date: 20141212
  Serious: Yes (Hospitalization, Other)
  Sender: FDA-Public Use
  Company Number: PHFR2013GB004813

PATIENT
  Age: 25 Year
  Sex: Female

DRUGS (3)
  1. CLOZARIL [Suspect]
     Indication: SCHIZOPHRENIA
     Route: 048
     Dates: start: 20130819
  2. CLOZARIL [Suspect]
     Dosage: 150 MG, BID
  3. VENLAFAXINE [Concomitant]
     Indication: DEPRESSION
     Dosage: 225 MG,
     Route: 048

REACTIONS (2)
  - Immune thrombocytopenic purpura [Unknown]
  - Platelet count decreased [Not Recovered/Not Resolved]
